FAERS Safety Report 6442095-X (Version None)
Quarter: 2009Q4

REPORT INFORMATION
  Report Type: 
  Country: None (occurrence: None)
  Receive Date: 20091116
  Receipt Date: 20091103
  Transmission Date: 20100525
  Serious: Yes (Hospitalization)
  Sender: FDA-Public Use
  Company Number: PHEH2009US14653

PATIENT
  Sex: Female
  Weight: 55.329 kg

DRUGS (14)
  1. RECLAST [Suspect]
     Indication: SENILE OSTEOPOROSIS
     Dosage: 5 MG YEARLY
     Route: 042
     Dates: start: 20080825, end: 20080825
  2. RECLAST [Suspect]
     Dosage: 5 MG YEARLY
     Route: 042
     Dates: start: 20090908, end: 20090908
  3. METHOTREXATE [Concomitant]
     Indication: RHEUMATOID ARTHRITIS
     Dosage: 7.5 MG EVERY WEEK
     Route: 048
  4. FOLIC ACID [Concomitant]
     Dosage: UNK, UNK
  5. BENICAR [Concomitant]
     Indication: HYPERTENSION
     Dosage: DAILY
     Route: 048
  6. HYDROCHLOROTHIAZIDE [Concomitant]
     Dosage: UNK, UNK
  7. ASPIRIN [Concomitant]
     Indication: HYPERTENSION
     Dosage: 81 MG, QD
     Route: 048
  8. FLOVENT [Concomitant]
     Indication: CHRONIC OBSTRUCTIVE PULMONARY DISEASE
     Dosage: AS NEEDED
  9. DILTIAZEM [Concomitant]
     Indication: HYPERTENSION
     Dosage: DAILY
     Route: 048
  10. SPIRIVA [Concomitant]
     Indication: CHRONIC OBSTRUCTIVE PULMONARY DISEASE
     Dosage: AS NEEDED
  11. CALCIUM WITH VITAMIN D [Concomitant]
     Dosage: UNK, UNK
  12. CENTRUM [Concomitant]
     Dosage: UNK, UNK
  13. IRON SUPPLEMENTS [Concomitant]
     Indication: ANAEMIA
     Dosage: DAILY
     Route: 048
  14. PERCOCET [Concomitant]
     Indication: PAIN
     Dosage: PRN
     Route: 048

REACTIONS (7)
  - ABDOMINAL PAIN [None]
  - BLOOD CREATININE INCREASED [None]
  - BOWEL MOVEMENT IRREGULARITY [None]
  - EXPLORATIVE LAPAROTOMY [None]
  - NAUSEA [None]
  - SMALL INTESTINAL OBSTRUCTION [None]
  - VOMITING [None]
